FAERS Safety Report 9335649 (Version 1)
Quarter: 2013Q2

REPORT INFORMATION
  Report Type: Spontaneous
  Country: GB (occurrence: GB)
  Receive Date: 20130605
  Receipt Date: 20130605
  Transmission Date: 20140414
  Serious: Yes (Life-Threatening)
  Sender: FDA-Public Use
  Company Number: GB-TEVA-408844ISR

PATIENT
  Age: 46 Year
  Sex: Female

DRUGS (2)
  1. METHOTREXATE [Suspect]
     Route: 058
  2. REMICADE [Suspect]
     Indication: PSORIASIS
     Route: 041

REACTIONS (1)
  - Pulmonary embolism [Recovered/Resolved]
